FAERS Safety Report 9555469 (Version 1)
Quarter: 2013Q3

REPORT INFORMATION
  Report Type: Report from Study
  Country: US (occurrence: US)
  Receive Date: 20130926
  Receipt Date: 20130926
  Transmission Date: 20140515
  Serious: Yes (Hospitalization)
  Sender: FDA-Public Use
  Company Number: US-JNJFOC-20130912549

PATIENT
  Age: 76 Year
  Sex: Male
  Weight: 96.16 kg

DRUGS (2)
  1. XARELTO [Suspect]
     Indication: CEREBROVASCULAR ACCIDENT PROPHYLAXIS
     Route: 048
     Dates: start: 2013
  2. XARELTO [Suspect]
     Indication: ATRIAL FIBRILLATION
     Route: 048
     Dates: start: 2013

REACTIONS (6)
  - Arrhythmia [Unknown]
  - Hypotension [Unknown]
  - Haemorrhage [Unknown]
  - Wound secretion [Unknown]
  - Contusion [Not Recovered/Not Resolved]
  - Laceration [Unknown]
